FAERS Safety Report 23485821 (Version 3)
Quarter: 2024Q2

REPORT INFORMATION
  Report Type: Spontaneous
  Country: DE (occurrence: DE)
  Receive Date: 20240206
  Receipt Date: 20240528
  Transmission Date: 20240715
  Serious: Yes (Hospitalization, Other)
  Sender: FDA-Public Use
  Company Number: DE-BRISTOL-MYERS SQUIBB COMPANY-2022-159861

PATIENT
  Age: 66 Year
  Sex: Male
  Weight: 62 kg

DRUGS (58)
  1. CISPLATIN [Suspect]
     Active Substance: CISPLATIN
     Indication: Non-small cell lung cancer
     Dosage: 149 MG, Q3W
     Route: 042
     Dates: start: 20221208, end: 20230110
  2. OPDIVO [Suspect]
     Active Substance: NIVOLUMAB
     Indication: Non-small cell lung cancer
     Dosage: 360 MG, Q3W
     Route: 042
     Dates: start: 20221206
  3. PEMETREXED [Suspect]
     Active Substance: PEMETREXED
     Indication: Product used for unknown indication
     Dosage: 1000 MG
     Route: 065
     Dates: start: 20221208, end: 20230110
  4. PEMETREXED [Suspect]
     Active Substance: PEMETREXED
     Dosage: 925 MG
     Route: 065
     Dates: start: 20230110
  5. YERVOY [Suspect]
     Active Substance: IPILIMUMAB
     Indication: Non-small cell lung cancer
     Dosage: 80 MG, 6 WEEKS
     Route: 042
     Dates: start: 20221206
  6. AKYNZEO [Concomitant]
     Indication: Prophylaxis
     Dosage: UNK
     Route: 065
     Dates: start: 20221208, end: 20221208
  7. AKYNZEO [Concomitant]
     Dosage: UNK
     Route: 065
     Dates: start: 20230110, end: 20230110
  8. AMOXICILLIN [Concomitant]
     Active Substance: AMOXICILLIN
     Indication: Product used for unknown indication
     Dosage: UNK
     Route: 065
     Dates: start: 20221226, end: 20221231
  9. AMOXICILLIN [Concomitant]
     Active Substance: AMOXICILLIN
     Dosage: UNK
     Route: 065
     Dates: start: 20221229, end: 20221231
  10. AMPHO-MORONAL [Concomitant]
     Active Substance: AMPHOTERICIN B
     Dosage: UNK
     Route: 065
     Dates: start: 20221213, end: 20230103
  11. AMPHO-MORONAL [Concomitant]
     Active Substance: AMPHOTERICIN B
     Dosage: UNK
     Route: 065
     Dates: start: 20221213, end: 20230103
  12. AMPHO-MORONAL [Concomitant]
     Active Substance: AMPHOTERICIN B
     Dosage: UNK
     Route: 065
     Dates: start: 20221213, end: 20230103
  13. AMPHO-MORONAL [Concomitant]
     Active Substance: AMPHOTERICIN B
     Dosage: UNK
     Route: 065
     Dates: start: 20221213, end: 20230103
  14. AMPHO-MORONAL [Concomitant]
     Active Substance: AMPHOTERICIN B
     Dosage: UNK
     Route: 065
     Dates: start: 20221213, end: 20230103
  15. AMPHO-MORONAL [Concomitant]
     Active Substance: AMPHOTERICIN B
     Dosage: UNK
     Route: 065
     Dates: start: 20221213, end: 20230103
  16. AMPHO-MORONAL [Concomitant]
     Active Substance: AMPHOTERICIN B
     Dosage: UNK
     Route: 065
     Dates: start: 20221213, end: 20230103
  17. AMPHO-MORONAL [Concomitant]
     Active Substance: AMPHOTERICIN B
     Dosage: UNK
     Route: 065
     Dates: start: 20221213, end: 20230103
  18. AMPHO-MORONAL [Concomitant]
     Active Substance: AMPHOTERICIN B
     Dosage: UNK
     Route: 065
     Dates: start: 20221213, end: 20230103
  19. AMPHO-MORONAL [Concomitant]
     Active Substance: AMPHOTERICIN B
     Indication: Product used for unknown indication
     Dosage: UNK (SUSPENSION)
     Route: 065
     Dates: start: 20221213, end: 20230103
  20. ASPIRIN [Concomitant]
     Active Substance: ASPIRIN
     Indication: Prophylaxis
     Dosage: UNK
     Route: 065
     Dates: start: 20160101
  21. ATORVASTATIN [Concomitant]
     Active Substance: ATORVASTATIN
     Indication: Prophylaxis
     Dosage: UNK
     Route: 065
     Dates: start: 20160101
  22. Bepanthen [Concomitant]
     Indication: Product used for unknown indication
     Dosage: UNK
     Route: 065
     Dates: start: 20221113, end: 20230103
  23. Bepanthen [Concomitant]
     Dosage: UNK
     Route: 065
     Dates: start: 20221213, end: 20230103
  24. CALCIUM [Concomitant]
     Active Substance: CALCIUM
     Indication: Prophylaxis
     Dosage: UNK
     Route: 065
     Dates: start: 20230124
  25. CANDESARTAN [Concomitant]
     Active Substance: CANDESARTAN
     Indication: Prophylaxis
     Dosage: UNK
     Route: 065
     Dates: start: 20211201
  26. CANDESARTAN [Concomitant]
     Active Substance: CANDESARTAN
     Dosage: UNK
     Route: 065
     Dates: start: 20211201
  27. CANDESARTAN [Concomitant]
     Active Substance: CANDESARTAN
     Dosage: UNK
     Route: 065
     Dates: start: 20211201
  28. DEKRISTOLVIT D3 [Concomitant]
     Indication: Prophylaxis
     Dosage: UNK
     Route: 065
     Dates: start: 20230124
  29. DEXAMETHASONE [Concomitant]
     Active Substance: DEXAMETHASONE
     Indication: Prophylaxis
     Dosage: UNK
     Route: 065
     Dates: start: 20170101, end: 20221206
  30. DEXAMETHASONE [Concomitant]
     Active Substance: DEXAMETHASONE
     Dosage: UNK
     Route: 065
     Dates: start: 20221207, end: 20221207
  31. DEXAMETHASONE [Concomitant]
     Active Substance: DEXAMETHASONE
     Dosage: UNK
     Route: 065
     Dates: start: 20221208, end: 20221208
  32. DEXAMETHASONE [Concomitant]
     Active Substance: DEXAMETHASONE
     Dosage: UNK
     Route: 065
     Dates: start: 20221209, end: 20221209
  33. DEXAMETHASONE [Concomitant]
     Active Substance: DEXAMETHASONE
     Dosage: UNK
     Route: 065
     Dates: start: 20221210, end: 20230613
  34. FILGRASTIM [Concomitant]
     Active Substance: FILGRASTIM
     Indication: Product used for unknown indication
     Dosage: UNK
     Route: 065
     Dates: start: 20221223, end: 20221225
  35. FOLIC ACID [Concomitant]
     Active Substance: FOLIC ACID
     Indication: Prophylaxis
     Dosage: UNK
     Route: 065
     Dates: start: 20221206, end: 20230131
  36. FOLIC ACID [Concomitant]
     Active Substance: FOLIC ACID
     Dosage: UNK
     Route: 065
     Dates: start: 20221206, end: 20230131
  37. FOLIC ACID [Concomitant]
     Active Substance: FOLIC ACID
     Dosage: UNK
     Route: 065
     Dates: start: 20221206, end: 20230131
  38. FOLIC ACID [Concomitant]
     Active Substance: FOLIC ACID
     Dosage: UNK
     Route: 065
     Dates: start: 20230613
  39. FOLIC ACID [Concomitant]
     Active Substance: FOLIC ACID
     Dosage: UNK
     Route: 065
     Dates: start: 20230613
  40. FUROSEMIDE [Concomitant]
     Active Substance: FUROSEMIDE
     Indication: Product used for unknown indication
     Dosage: UNK
     Route: 065
     Dates: start: 20221208, end: 20221208
  41. FUROSEMIDE [Concomitant]
     Active Substance: FUROSEMIDE
     Dosage: UNK
     Route: 065
     Dates: start: 20230110, end: 20230110
  42. Kalinor [Concomitant]
     Indication: Prophylaxis
     Dosage: UNK
     Route: 065
     Dates: start: 20230215
  43. MCP [Concomitant]
     Active Substance: METOCLOPRAMIDE HYDROCHLORIDE
     Indication: Prophylaxis
     Dosage: UNK
     Route: 065
     Dates: start: 20221206
  44. PANTOPRAZOLE [Concomitant]
     Active Substance: PANTOPRAZOLE
     Indication: Prophylaxis
     Dosage: UNK
     Route: 065
     Dates: start: 20221206
  45. PEMETREXED DISODIUM [Concomitant]
     Active Substance: PEMETREXED DISODIUM
     Indication: Product used for unknown indication
     Dosage: UNK
     Route: 065
     Dates: start: 20230203, end: 20230606
  46. PEMETREXED DISODIUM [Concomitant]
     Active Substance: PEMETREXED DISODIUM
     Dosage: UNK
     Route: 065
     Dates: start: 20230203, end: 20230606
  47. VITAMIN B12 [Concomitant]
     Active Substance: CYANOCOBALAMIN
     Indication: Prophylaxis
     Dosage: UNK
     Route: 065
     Dates: start: 20221129, end: 20230131
  48. ZOLEDRONIC ACID [Concomitant]
     Active Substance: ZOLEDRONIC ACID
     Indication: Product used for unknown indication
     Dosage: UNK
     Route: 065
     Dates: start: 20230124
  49. ZOLEDRONIC ACID [Concomitant]
     Active Substance: ZOLEDRONIC ACID
     Dosage: UNK
     Route: 065
     Dates: start: 20230124
  50. ZOLEDRONIC ACID [Concomitant]
     Active Substance: ZOLEDRONIC ACID
     Dosage: UNK
     Route: 065
     Dates: start: 20230124
  51. ZOLEDRONIC ACID [Concomitant]
     Active Substance: ZOLEDRONIC ACID
     Dosage: UNK
     Route: 065
     Dates: start: 20230124
  52. ZOLEDRONIC ACID [Concomitant]
     Active Substance: ZOLEDRONIC ACID
     Dosage: UNK
     Route: 065
     Dates: start: 20230124
  53. ZOLEDRONIC ACID [Concomitant]
     Active Substance: ZOLEDRONIC ACID
     Dosage: UNK
     Route: 065
     Dates: start: 20230124
  54. ZOLEDRONIC ACID [Concomitant]
     Active Substance: ZOLEDRONIC ACID
     Dosage: UNK
     Route: 065
     Dates: start: 20230124
  55. ZOLEDRONIC ACID [Concomitant]
     Active Substance: ZOLEDRONIC ACID
     Dosage: UNK
     Route: 065
     Dates: start: 20230516, end: 20230610
  56. ZOLEDRONIC ACID [Concomitant]
     Active Substance: ZOLEDRONIC ACID
     Dosage: UNK
     Route: 065
     Dates: start: 20230516, end: 20230610
  57. ZOLEDRONIC ACID [Concomitant]
     Active Substance: ZOLEDRONIC ACID
     Dosage: UNK
     Route: 065
     Dates: start: 20230808
  58. ZOLEDRONIC ACID [Concomitant]
     Active Substance: ZOLEDRONIC ACID
     Dosage: UNK
     Route: 065
     Dates: start: 20230808

REACTIONS (13)
  - General physical health deterioration [Not Recovered/Not Resolved]
  - Prerenal failure [Recovered/Resolved]
  - Tachycardia [Not Recovered/Not Resolved]
  - Metastases to spinal cord [Unknown]
  - Pneumonia [Recovered/Resolved]
  - Neutropenia [Recovered/Resolved]
  - Fatigue [Recovered/Resolved]
  - Hypercalcaemia [Not Recovered/Not Resolved]
  - Weight decreased [Recovered/Resolved]
  - Anaemia [Not Recovered/Not Resolved]
  - Decreased appetite [Recovered/Resolved]
  - Diarrhoea [Recovered/Resolved]
  - Prescribed overdose [Unknown]

NARRATIVE: CASE EVENT DATE: 20221215
